FAERS Safety Report 9643054 (Version 1)
Quarter: 2013Q4

REPORT INFORMATION
  Report Type: Spontaneous
  Country: US (occurrence: None)
  Receive Date: 20131023
  Receipt Date: 20131023
  Transmission Date: 20140711
  Serious: Yes (Other)
  Sender: FDA-Public Use
  Company Number: None

PATIENT
  Age: 4 Year
  Sex: Male

DRUGS (1)
  1. GAMMAGARD [Suspect]
     Indication: HYPOGAMMAGLOBULINAEMIA
     Route: 042
     Dates: start: 20130903

REACTIONS (6)
  - Pyrexia [None]
  - Chills [None]
  - Back pain [None]
  - Nausea [None]
  - Vomiting [None]
  - Headache [None]
